FAERS Safety Report 21127465 (Version 1)
Quarter: 2022Q3

REPORT INFORMATION
  Report Type: Spontaneous
  Country: US (occurrence: US)
  Receive Date: 20220725
  Receipt Date: 20220725
  Transmission Date: 20221026
  Serious: Yes (Other)
  Sender: FDA-Public Use
  Company Number: US-GILEAD-2022-0590609

PATIENT
  Age: 69 Year
  Sex: Female

DRUGS (1)
  1. YESCARTA [Suspect]
     Active Substance: AXICABTAGENE CILOLEUCEL
     Indication: Diffuse large B-cell lymphoma
     Dosage: UNK
     Route: 065
     Dates: start: 20220718

REACTIONS (8)
  - Anaphylactic reaction [Unknown]
  - Air embolism [Unknown]
  - Unresponsive to stimuli [Recovered/Resolved]
  - Bradycardia [Unknown]
  - Supraventricular tachycardia [Unknown]
  - Hypertension [Unknown]
  - Dyspnoea [Unknown]
  - Tachycardia [Unknown]
